FAERS Safety Report 22930717 (Version 2)
Quarter: 2025Q4

REPORT INFORMATION
  Report Type: Report from Study
  Country: EU (occurrence: EU)
  Receive Date: 20230911
  Receipt Date: 20251113
  Transmission Date: 20260118
  Serious: Yes (Other)
  Sender: TAKEDA
  Company Number: EU-TAKEDA-2018EPA004749

PATIENT
  Age: 74 Year
  Sex: Male
  Weight: 71 kg

DRUGS (3)
  1. MESALAMINE [Suspect]
     Active Substance: MESALAMINE
     Indication: Product used for unknown indication
     Dosage: UNK
  2. MERCAPTOPURINE [Suspect]
     Active Substance: MERCAPTOPURINE
     Indication: Colitis ulcerative
     Dosage: 75 MILLIGRAM, QD
  3. MERCAPTOPURINE [Suspect]
     Active Substance: MERCAPTOPURINE
     Indication: Immunosuppression

REACTIONS (9)
  - Thrombocytopenia [Recovering/Resolving]
  - Neutrophil count decreased [Recovering/Resolving]
  - Myelosuppression [Recovering/Resolving]
  - Anaemia [Recovering/Resolving]
  - Leukopenia [Recovered/Resolved]
  - Lymphocyte count decreased [Recovering/Resolving]
  - Aspartate aminotransferase increased [Unknown]
  - Monocyte count decreased [Recovering/Resolving]
  - Off label use [Unknown]
